FAERS Safety Report 8031523-4 (Version None)
Quarter: 2011Q4

REPORT INFORMATION
  Report Type: 
  Country: None (occurrence: None)
  Receive Date: 20111201
  Receipt Date: 20110217
  Transmission Date: 20120403
  Serious: Yes (Other)
  Sender: FDA-Public Use
  Company Number: 2011SP007697

PATIENT
  Age: 53 Year
  Sex: Female

DRUGS (3)
  1. NASONEX [Suspect]
     Indication: HYPERSENSITIVITY
     Dosage: 4 DF;QD;NAS
     Route: 045
     Dates: start: 20100101
  2. LEXAPRO [Concomitant]
  3. VITAMIN TAB [Concomitant]

REACTIONS (1)
  - GLAUCOMA [None]
